FAERS Safety Report 5164531-1 (Version None)
Quarter: 2006Q4

REPORT INFORMATION
  Report Type: 
  Country: None (occurrence: None)
  Receive Date: 20061205
  Receipt Date: 20061122
  Transmission Date: 20070319
  Serious: Yes (Other)
  Sender: FDA-Public Use
  Company Number: PHFR2006GB03465

PATIENT
  Age: 13 Year
  Sex: Male

DRUGS (3)
  1. TEGRETOL [Suspect]
     Dosage: 100 MG MANE, 100MG NOCTE
     Route: 048
  2. TEGRETOL [Suspect]
     Dosage: 200 MG MANE, 200MG NOCTE
     Route: 048
  3. RISPERIDONE [Concomitant]

REACTIONS (10)
  - AGGRESSION [None]
  - CONDITION AGGRAVATED [None]
  - CONVULSION [None]
  - DEPRESSED LEVEL OF CONSCIOUSNESS [None]
  - DEPRESSED MOOD [None]
  - DYSKINESIA [None]
  - FEAR [None]
  - FEELING ABNORMAL [None]
  - SOMNOLENCE [None]
  - TIC [None]
